FAERS Safety Report 13595843 (Version 1)
Quarter: 2017Q2

REPORT INFORMATION
  Report Type: Spontaneous
  Country: US (occurrence: US)
  Receive Date: 20170531
  Receipt Date: 20170531
  Transmission Date: 20170830
  Serious: Yes (Other)
  Sender: FDA-Public Use
  Company Number: US-JNJFOC-20170512082

PATIENT
  Sex: Female

DRUGS (3)
  1. MOTRIN [Suspect]
     Active Substance: IBUPROFEN
     Route: 048
  2. DIGESTIVE ADVANTAGE PROBIOTIC [Concomitant]
     Indication: DYSPEPSIA
     Dosage: 1 PILL A DAY, 5 YEARS
     Route: 065
  3. MOTRIN [Suspect]
     Active Substance: IBUPROFEN
     Indication: ANALGESIC THERAPY
     Dosage: TOOK FOR 7 MONTHS
     Route: 048

REACTIONS (1)
  - Gastric ulcer [Not Recovered/Not Resolved]
